FAERS Safety Report 18764417 (Version 2)
Quarter: 2021Q1

REPORT INFORMATION
  Report Type: Spontaneous
  Country: US (occurrence: US)
  Receive Date: 20210120
  Receipt Date: 20210312
  Transmission Date: 20210419
  Serious: No
  Sender: FDA-Public Use
  Company Number: US-ASTRAZENECA-2021A004884

PATIENT
  Age: 678 Month
  Sex: Female
  Weight: 88.5 kg

DRUGS (5)
  1. PULMICORT FLEXHALER [Suspect]
     Active Substance: BUDESONIDE
     Indication: COUGH
     Dosage: 90 MCG, 1 PUFF TWICE A DAY
     Route: 055
     Dates: start: 202011
  2. PULMICORT FLEXHALER [Suspect]
     Active Substance: BUDESONIDE
     Indication: RESPIRATORY TRACT CONGESTION
     Dosage: 90 MCG, 1 PUFF TWICE A DAY
     Route: 055
     Dates: start: 202011
  3. IMMUNOGLOBULIN [Concomitant]
     Route: 042
  4. PULMICORT FLEXHALER [Suspect]
     Active Substance: BUDESONIDE
     Indication: ASTHMA
     Dosage: 90 MCG, 1 PUFF TWICE A DAY
     Route: 055
     Dates: start: 202011
  5. PULMICORT FLEXHALER [Suspect]
     Active Substance: BUDESONIDE
     Indication: SNEEZING
     Dosage: 90 MCG, 1 PUFF TWICE A DAY
     Route: 055
     Dates: start: 202011

REACTIONS (4)
  - Insomnia [Unknown]
  - Asthma [Unknown]
  - Device malfunction [Unknown]
  - Product dose omission issue [Unknown]

NARRATIVE: CASE EVENT DATE: 202012
